FAERS Safety Report 23147388 (Version 1)
Quarter: 2023Q4

REPORT INFORMATION
  Report Type: Spontaneous
  Country: CO (occurrence: CO)
  Receive Date: 20231106
  Receipt Date: 20231106
  Transmission Date: 20240109
  Serious: Yes (Death, Hospitalization, Other)
  Sender: FDA-Public Use
  Company Number: CO-TAKEDA-2023TUS083053

PATIENT
  Sex: Male
  Weight: 50 kg

DRUGS (5)
  1. PONATINIB [Suspect]
     Active Substance: PONATINIB
     Indication: Chronic myeloid leukaemia
     Dosage: 15 MILLIGRAM, QD
     Route: 065
     Dates: start: 20230530, end: 20230822
  2. PONATINIB [Suspect]
     Active Substance: PONATINIB
     Dosage: UNK
     Route: 065
     Dates: end: 20231010
  3. FOLIC ACID [Concomitant]
     Active Substance: FOLIC ACID
     Indication: Anaemia
     Dosage: 10 MILLIGRAM, QD
     Route: 048
     Dates: start: 20230822
  4. AZATHIOPRINE [Concomitant]
     Active Substance: AZATHIOPRINE
     Indication: Haemolytic anaemia
     Dosage: 50 MILLIGRAM, Q12H
     Route: 048
     Dates: start: 20230822
  5. ERYTHROPOIETIN [Concomitant]
     Active Substance: ERYTHROPOIETIN
     Indication: Anaemia
     Dosage: 30000 MICROGRAM
     Route: 042
     Dates: start: 20230822

REACTIONS (5)
  - Infection [Fatal]
  - Haemolytic anaemia [Unknown]
  - Pneumonia [Unknown]
  - Anaemia [Unknown]
  - Platelet count decreased [Unknown]
